FAERS Safety Report 25215706 (Version 4)
Quarter: 2025Q2

REPORT INFORMATION
  Report Type: Spontaneous
  Country: US (occurrence: US)
  Receive Date: 20250418
  Receipt Date: 20250609
  Transmission Date: 20250717
  Serious: Yes (Other)
  Sender: Kenvue
  Company Number: US-KENVUE-20250404448

PATIENT
  Sex: Female

DRUGS (2)
  1. NEUTROGENA ULTRA SHEER FACE MIST SUNSCREEN BROAD SPECTRUM SPF 55 [Suspect]
     Active Substance: AVOBENZONE\HOMOSALATE\OCTISALATE\OCTOCRYLENE
     Indication: Product used for unknown indication
     Route: 061
     Dates: start: 20250407, end: 202504
  2. PRAVASTATIN [Concomitant]
     Active Substance: PRAVASTATIN
     Indication: Blood cholesterol
     Route: 065
     Dates: start: 202501

REACTIONS (7)
  - Application site erythema [Recovering/Resolving]
  - Application site swelling [Recovering/Resolving]
  - Eye pruritus [Not Recovered/Not Resolved]
  - Lacrimation increased [Not Recovered/Not Resolved]
  - Application site pain [Unknown]
  - Eye irritation [Unknown]
  - Eye disorder [Not Recovered/Not Resolved]

NARRATIVE: CASE EVENT DATE: 20250101
